FAERS Safety Report 16102918 (Version 2)
Quarter: 2019Q1

REPORT INFORMATION
  Report Type: Report from Study
  Country: US (occurrence: US)
  Receive Date: 20190321
  Receipt Date: 20190322
  Transmission Date: 20190418
  Serious: Yes (Hospitalization)
  Sender: FDA-Public Use
  Company Number: US-BIOGEN-2019BI00712433

PATIENT
  Age: 65 Year
  Sex: Male

DRUGS (1)
  1. TYSABRI [Suspect]
     Active Substance: NATALIZUMAB
     Indication: MULTIPLE SCLEROSIS
     Dosage: INFUSED OVER 1 HOUR
     Route: 042

REACTIONS (2)
  - Fall [Recovered/Resolved]
  - Ankle fracture [Not Recovered/Not Resolved]

NARRATIVE: CASE EVENT DATE: 20190311
